FAERS Safety Report 4679715-6 (Version None)
Quarter: 2005Q2

REPORT INFORMATION
  Report Type: 
  Country: None (occurrence: None)
  Receive Date: 20050531
  Receipt Date: 20050506
  Transmission Date: 20051028
  Serious: Yes (Death)
  Sender: FDA-Public Use
  Company Number: PAR_0049_2005

PATIENT
  Age: 32 Year

DRUGS (3)
  1. IBUPROFEN [Suspect]
     Dosage: DF PO
     Route: 048
  2. QUETIAPINE FUMARATE [Suspect]
     Dosage: DF
  3. VENLAFAXINE HCL [Suspect]
     Dosage: DF

REACTIONS (2)
  - COMPLETED SUICIDE [None]
  - MULTIPLE DRUG OVERDOSE [None]
